FAERS Safety Report 23758433 (Version 2)
Quarter: 2024Q2

REPORT INFORMATION
  Report Type: Spontaneous
  Country: CO (occurrence: CO)
  Receive Date: 20240418
  Receipt Date: 20240603
  Transmission Date: 20240716
  Serious: Yes (Hospitalization)
  Sender: FDA-Public Use
  Company Number: CO-JNJFOC-20240430129

PATIENT
  Age: 81 Year
  Sex: Male

DRUGS (7)
  1. ZYTIGA [Suspect]
     Active Substance: ABIRATERONE ACETATE
     Indication: Prostate cancer metastatic
     Route: 048
  2. METFORMIN [Concomitant]
     Active Substance: METFORMIN HYDROCHLORIDE
     Dosage: 1000 MG TWICE DAILY
     Route: 065
  3. ENALAPRIL [Concomitant]
     Active Substance: ENALAPRIL
     Dosage: 20MG TWICE DAILY
     Route: 065
  4. ROSUVASTATIN [Concomitant]
     Active Substance: ROSUVASTATIN
     Dosage: 40 MG ONCE DAILY
     Route: 065
  5. LEUPROLIDE ACETATE [Concomitant]
     Active Substance: ISOPROPYL ALCOHOL\LEUPROLIDE ACETATE
     Dosage: DOSE: 22.5 MG EVERY 3 MONTHS
  6. PREDNISOLONE [Concomitant]
     Active Substance: PREDNISOLONE
     Dosage: 5 MG ONCE DAILY
     Route: 065
  7. PREDNISOLONE [Concomitant]
     Active Substance: PREDNISOLONE
     Route: 065

REACTIONS (9)
  - Torsade de pointes [Recovered/Resolved]
  - Hypokalaemia [Recovered/Resolved]
  - Hyperaldosteronism [Recovered/Resolved]
  - Electrocardiogram QT prolonged [Recovered/Resolved]
  - Hypomagnesaemia [Recovered/Resolved]
  - Hypertension [Recovered/Resolved]
  - Cortisol decreased [Recovered/Resolved]
  - Coronary artery disease [Unknown]
  - Off label use [Unknown]
